FAERS Safety Report 9824101 (Version 3)
Quarter: 2015Q3

REPORT INFORMATION
  Report Type: Spontaneous
  Country: US (occurrence: US)
  Receive Date: 20140116
  Receipt Date: 20150810
  Transmission Date: 20151125
  Serious: No
  Sender: FDA-Public Use
  Company Number: US-GILEAD-2011-0040207

PATIENT
  Age: 55 Year
  Sex: Female

DRUGS (1)
  1. LETAIRIS [Suspect]
     Active Substance: AMBRISENTAN
     Indication: PRODUCT USED FOR UNKNOWN INDICATION
     Route: 048

REACTIONS (5)
  - Muscle spasms [Unknown]
  - Oedema [Unknown]
  - Abdominal discomfort [Unknown]
  - Tinnitus [Unknown]
  - Feeling hot [Unknown]
